FAERS Safety Report 9135716 (Version 3)
Quarter: 2013Q1

REPORT INFORMATION
  Report Type: Spontaneous
  Country: JP (occurrence: JP)
  Receive Date: 20130304
  Receipt Date: 20130325
  Transmission Date: 20140127
  Serious: Yes (Death, Hospitalization)
  Sender: FDA-Public Use
  Company Number: JP-JNJFOC-20130214489

PATIENT
  Age: 71 None
  Sex: Female
  Weight: 50 kg

DRUGS (11)
  1. SIMPONI [Suspect]
     Indication: RHEUMATOID ARTHRITIS
     Dosage: 6TH ADMINISTRATION
     Route: 058
     Dates: start: 20121126, end: 20121126
  2. SIMPONI [Suspect]
     Indication: RHEUMATOID ARTHRITIS
     Route: 058
     Dates: start: 20120604, end: 20121015
  3. SIMPONI [Suspect]
     Indication: RHEUMATOID ARTHRITIS
     Dosage: 7TH ADMINISTRATION
     Route: 058
     Dates: start: 20121119
  4. PREDNISOLONE [Suspect]
     Indication: INTERSTITIAL LUNG DISEASE
     Route: 048
     Dates: start: 2010
  5. AZULFIDINE-EN [Concomitant]
     Indication: RHEUMATOID ARTHRITIS
     Route: 048
     Dates: end: 20130109
  6. FLOMOX [Concomitant]
     Route: 048
     Dates: start: 20121226, end: 20130102
  7. LOXONIN [Concomitant]
     Route: 065
     Dates: end: 20130109
  8. PARIET [Concomitant]
     Route: 048
  9. ACTONEL [Concomitant]
     Route: 048
  10. ALESION [Concomitant]
     Route: 048
  11. METHYCOBAL [Concomitant]
     Route: 048

REACTIONS (4)
  - Rheumatoid vasculitis [Fatal]
  - Interstitial lung disease [Fatal]
  - Urinary tract infection [Recovered/Resolved]
  - Drug ineffective [Unknown]
